FAERS Safety Report 6760493-1 (Version None)
Quarter: 2010Q2

REPORT INFORMATION
  Report Type: 
  Country: None (occurrence: None)
  Receive Date: 20100608
  Receipt Date: 20100527
  Transmission Date: 20101027
  Serious: Yes (Hospitalization, Disabling)
  Sender: FDA-Public Use
  Company Number: FR-SANOFI-AVENTIS-200911784FR

PATIENT
  Age: 34 Year
  Sex: Female

DRUGS (8)
  1. RIFATER [Suspect]
     Indication: TUBERCULOSIS
     Dosage: DOSE:4 UNIT(S)
     Route: 048
     Dates: start: 20081114
  2. PREDNISOLONE METASULPHOBENZOATE SODIUM [Suspect]
     Indication: DRUG USE FOR UNKNOWN INDICATION
     Dates: start: 20081201
  3. EMTRICITABINE/TENOFOVIR DISOPROXIL FUMARATE [Suspect]
     Indication: HIV INFECTION
     Dosage: DOSE:1 UNIT(S)
     Route: 048
     Dates: start: 20081114
  4. SUSTIVA [Suspect]
     Indication: HIV INFECTION
     Dosage: DOSE:1 UNIT(S)
     Route: 048
     Dates: start: 20081114
  5. FUZEON [Suspect]
     Indication: HIV INFECTION
     Dosage: DOSE UNIT: 90 MG/ML
     Route: 048
     Dates: start: 20081114
  6. MYAMBUTOL [Suspect]
     Indication: TUBERCULOSIS
     Dosage: DOSE:2 UNIT(S)
     Dates: start: 20081114
  7. SPECIAFOLDINE [Concomitant]
     Route: 048
  8. BACTRIM [Concomitant]
     Dosage: DOSE:1 UNIT(S)
     Dates: start: 20081114

REACTIONS (3)
  - IMMUNE RECONSTITUTION SYNDROME [None]
  - IMPAIRED GASTRIC EMPTYING [None]
  - LYMPHADENOPATHY [None]
